FAERS Safety Report 9571156 (Version 1)
Quarter: 2013Q3

REPORT INFORMATION
  Report Type: Spontaneous
  Country: US (occurrence: None)
  Receive Date: 20130927
  Receipt Date: 20130927
  Transmission Date: 20140515
  Serious: Yes (Hospitalization)
  Sender: FDA-Public Use
  Company Number: None

PATIENT
  Age: 23 Year
  Sex: Male
  Weight: 84.2 kg

DRUGS (1)
  1. MORPHINE [Suspect]
     Indication: PAIN
     Route: 042
     Dates: start: 20130924, end: 20130925

REACTIONS (3)
  - Angioedema [None]
  - Lip swelling [None]
  - Eye swelling [None]
